FAERS Safety Report 24702929 (Version 2)
Quarter: 2024Q4

REPORT INFORMATION
  Report Type: Report from Study
  Country: AT (occurrence: EU)
  Receive Date: 20241205
  Receipt Date: 20241220
  Transmission Date: 20250115
  Serious: Yes (Hospitalization)
  Sender: ASCENDIS PHARMA
  Company Number: AT-ASCENDIS PHARMA-2024EU007146

PATIENT

DRUGS (4)
  1. PALOPEGTERIPARATIDE [Suspect]
     Active Substance: PALOPEGTERIPARATIDE
     Indication: Hypoparathyroidism
     Dosage: 18 ?G, DAILY
     Route: 058
     Dates: start: 20241113, end: 20241122
  2. PALOPEGTERIPARATIDE [Suspect]
     Active Substance: PALOPEGTERIPARATIDE
     Dosage: 15 MICROGRAM, QD
     Route: 058
     Dates: start: 20241124
  3. PALOPEGTERIPARATIDE [Suspect]
     Active Substance: PALOPEGTERIPARATIDE
     Dosage: 18 MICROGRAM, QD
     Route: 058
  4. PALOPEGTERIPARATIDE [Suspect]
     Active Substance: PALOPEGTERIPARATIDE
     Dosage: 21 MICROGRAM, QD
     Route: 058

REACTIONS (5)
  - Renal impairment [Recovered/Resolved]
  - Palpitations [Recovered/Resolved]
  - Dizziness [Recovered/Resolved]
  - Hypercalcaemia [Recovered/Resolved]
  - Pruritus [Recovered/Resolved]

NARRATIVE: CASE EVENT DATE: 20241120
